FAERS Safety Report 24841485 (Version 2)
Quarter: 2025Q1

REPORT INFORMATION
  Report Type: Spontaneous
  Country: US (occurrence: US)
  Receive Date: 20250114
  Receipt Date: 20250121
  Transmission Date: 20250409
  Serious: Yes (Other)
  Sender: PFIZER
  Company Number: US-PFIZER INC-202500002532

PATIENT
  Age: 62 Year
  Sex: Female

DRUGS (11)
  1. IBRANCE [Suspect]
     Active Substance: PALBOCICLIB
     Indication: Breast cancer
     Route: 048
     Dates: start: 20191028
  2. IBRANCE [Suspect]
     Active Substance: PALBOCICLIB
     Route: 048
     Dates: start: 20191113
  3. OXYCODONE [Concomitant]
     Active Substance: OXYCODONE
  4. LETROZOLE [Concomitant]
     Active Substance: LETROZOLE
  5. IBUPROFEN [Concomitant]
     Active Substance: IBUPROFEN
  6. LEVOTHYROXINE [Concomitant]
     Active Substance: LEVOTHYROXINE
  7. GABAPENTIN [Concomitant]
     Active Substance: GABAPENTIN
  8. MAGNESIUM [Concomitant]
     Active Substance: MAGNESIUM
  9. VENTOLIN [Concomitant]
     Active Substance: ALBUTEROL SULFATE
  10. FLUTICASONE [Concomitant]
     Active Substance: FLUTICASONE
  11. OMEPRAZOLE [Concomitant]
     Active Substance: OMEPRAZOLE

REACTIONS (1)
  - Pneumonia [Unknown]
